FAERS Safety Report 5698231-6 (Version None)
Quarter: 2008Q2

REPORT INFORMATION
  Report Type: 
  Country: None (occurrence: None)
  Receive Date: 20080408
  Receipt Date: 20080328
  Transmission Date: 20081010
  Serious: Yes (Hospitalization, Other)
  Sender: FDA-Public Use
  Company Number: DE-PFIZER INC-2008020525

PATIENT
  Sex: Male
  Weight: 93 kg

DRUGS (7)
  1. SU-011,248 [Suspect]
     Indication: METASTATIC RENAL CELL CARCINOMA
     Route: 048
     Dates: start: 20080206, end: 20080227
  2. TRANDOLAPRIL [Concomitant]
     Route: 048
  3. AMLODIPINE [Concomitant]
     Route: 048
     Dates: start: 20000701
  4. BISOPROLOL FUMARATE [Concomitant]
     Route: 048
  5. FUROSEMIDE [Concomitant]
     Route: 048
  6. PHENPROCOUMON [Concomitant]
     Route: 048
  7. L-THYROXIN [Concomitant]
     Route: 048
     Dates: start: 20070523

REACTIONS (2)
  - CEREBRAL INFARCTION [None]
  - SEPSIS [None]
